FAERS Safety Report 14297557 (Version 1)
Quarter: 2017Q4

REPORT INFORMATION
  Report Type: Spontaneous
  Country: DK (occurrence: DK)
  Receive Date: 20171218
  Receipt Date: 20171218
  Transmission Date: 20180321
  Serious: Yes (Disabling, Other)
  Sender: FDA-Public Use
  Company Number: DK-BRISTOL-MYERS SQUIBB COMPANY-BMS-2017-111490

PATIENT
  Age: 54 Year
  Sex: Male

DRUGS (3)
  1. KENALOG [Suspect]
     Active Substance: TRIAMCINOLONE ACETONIDE
     Indication: POLYMYALGIA RHEUMATICA
     Dosage: UNK
     Route: 065
     Dates: start: 20170110, end: 20170307
  2. LIDOCAINE. [Concomitant]
     Active Substance: LIDOCAINE
     Indication: POLYMYALGIA RHEUMATICA
     Route: 065
     Dates: start: 20170110, end: 20170307
  3. PREDNISOLON ^DLF^ [Concomitant]
     Active Substance: PREDNISOLONE
     Indication: POLYMYALGIA RHEUMATICA
     Dosage: 10 MG, QD
     Route: 048
     Dates: start: 20160905

REACTIONS (6)
  - Visual acuity reduced [Not Recovered/Not Resolved]
  - Eye irritation [Unknown]
  - Vision blurred [Unknown]
  - Eye pain [Unknown]
  - Glaucoma [Not Recovered/Not Resolved]
  - Halo vision [Unknown]

NARRATIVE: CASE EVENT DATE: 20170309
